FAERS Safety Report 9882379 (Version 2)
Quarter: 2014Q1

REPORT INFORMATION
  Report Type: Spontaneous
  Country: JP (occurrence: JP)
  Receive Date: 20140207
  Receipt Date: 20140217
  Transmission Date: 20141002
  Serious: Yes (Other)
  Sender: FDA-Public Use
  Company Number: JP-GLAXOSMITHKLINE-B0966388A

PATIENT
  Age: 23 Year
  Sex: Female

DRUGS (3)
  1. RELVAR ELLIPTA (FLUTICASONE FUROATE/VILANTEROL) [Suspect]
     Dosage: 100MCG PER DAY
     Route: 055
     Dates: start: 20131228
  2. KIPRES [Concomitant]
     Dosage: 10MG PER DAY
     Route: 048
     Dates: start: 20131228, end: 20140103
  3. DIMEMORFAN PHOSPHATE [Concomitant]
     Dosage: 10MG THREE TIMES PER DAY
     Route: 048
     Dates: start: 20131228, end: 20140103

REACTIONS (5)
  - Pneumonia [Recovered/Resolved]
  - Chills [Unknown]
  - Pyrexia [Recovered/Resolved]
  - Pharyngeal erythema [Unknown]
  - Cough [Unknown]
